FAERS Safety Report 6082209-7 (Version None)
Quarter: 2009Q1

REPORT INFORMATION
  Report Type: 
  Country: None (occurrence: None)
  Receive Date: 20090218
  Receipt Date: 20090211
  Transmission Date: 20090719
  Serious: Yes (Hospitalization)
  Sender: FDA-Public Use
  Company Number: B0558716A

PATIENT
  Age: 74 Year
  Sex: Male

DRUGS (9)
  1. REQUIP [Suspect]
     Indication: PARKINSON'S DISEASE
     Dosage: 1TAB TWICE PER DAY
     Dates: start: 20080612, end: 20090120
  2. MODOPAR [Suspect]
     Indication: PARKINSONISM
     Route: 048
     Dates: start: 20061127
  3. JOSIR [Concomitant]
     Indication: PROSTATIC ADENOMA
     Dosage: 1UNIT PER DAY
     Route: 048
  4. BEFIZAL LP [Concomitant]
     Dosage: 1UNIT PER DAY
     Route: 048
     Dates: end: 20090120
  5. OGAST [Concomitant]
     Dosage: 1UNIT PER DAY
     Route: 048
     Dates: end: 20090120
  6. TRANSIPEG [Concomitant]
     Dosage: 1UNIT TWICE PER DAY
     Route: 048
  7. VENTOLIN [Concomitant]
     Indication: ASTHMA
     Dosage: 1UNIT TWICE PER DAY
     Route: 055
  8. DAFALGAN [Concomitant]
     Dosage: 1UNIT FOUR TIMES PER DAY
     Route: 048
  9. TROSPIUM CHLORIDE [Concomitant]
     Indication: PROSTATIC ADENOMA
     Dosage: 1UNIT PER DAY
     Route: 048

REACTIONS (9)
  - APHASIA [None]
  - CAROTID ARTERY STENOSIS [None]
  - DYSARTHRIA [None]
  - INAPPROPRIATE SCHEDULE OF DRUG ADMINISTRATION [None]
  - MALAISE [None]
  - NERVOUS SYSTEM DISORDER [None]
  - PALLOR [None]
  - TRANSIENT ISCHAEMIC ATTACK [None]
  - VERTIGO [None]
